FAERS Safety Report 9995206 (Version 1)
Quarter: 2014Q1

REPORT INFORMATION
  Report Type: Spontaneous
  Country: JP (occurrence: None)
  Receive Date: 20140307
  Receipt Date: 20140307
  Transmission Date: 20141002
  Serious: Yes (Other)
  Sender: FDA-Public Use
  Company Number: SYM-2014-18053

PATIENT
  Age: 61 Year
  Sex: Male

DRUGS (3)
  1. FLUOROURACIL [Suspect]
     Indication: GINGIVAL CANCER
  2. DOCETAXEL [Suspect]
     Indication: GINGIVAL CANCER
  3. CISPLATIN [Suspect]
     Indication: GINGIVAL CANCER

REACTIONS (5)
  - Neutropenia [None]
  - Diarrhoea [None]
  - Nausea [None]
  - Decreased appetite [None]
  - Rash generalised [None]
